FAERS Safety Report 4951050-8 (Version None)
Quarter: 2006Q1

REPORT INFORMATION
  Report Type: 
  Country: None (occurrence: None)
  Receive Date: 20060322
  Receipt Date: 20050823
  Transmission Date: 20060701
  Serious: Yes (Death, Hospitalization)
  Sender: FDA-Public Use
  Company Number: US-MERCK-0508USA03961

PATIENT
  Age: 87 Year
  Sex: Male
  Weight: 73 kg

DRUGS (27)
  1. VIOXX [Suspect]
     Indication: PAIN
     Route: 048
     Dates: start: 20010116, end: 20040924
  2. LIPITOR [Concomitant]
     Indication: BLOOD CHOLESTEROL INCREASED
     Route: 065
     Dates: start: 20010116
  3. BAYCOL [Concomitant]
     Route: 065
  4. NORVASC [Concomitant]
     Route: 065
  5. PRAVACHOL [Concomitant]
     Route: 065
  6. BIAXIN [Concomitant]
     Route: 065
  7. GUIATUSS [Concomitant]
     Route: 065
  8. AVELOX [Concomitant]
     Route: 065
  9. BENZONATATE [Concomitant]
     Route: 065
  10. SOTALOL HYDROCHLORIDE [Concomitant]
     Route: 065
  11. HYDROCHLOROTHIAZIDE [Concomitant]
     Route: 065
  12. ZITHROMAX [Concomitant]
     Route: 065
  13. LISINOPRIL [Concomitant]
     Route: 065
  14. METOPROLOL [Concomitant]
     Route: 065
  15. RISPERDAL [Concomitant]
     Route: 065
  16. HYDRALAZINE [Concomitant]
     Route: 065
  17. AMBIEN [Concomitant]
     Route: 065
  18. ISOSORBIDE DINITRATE [Concomitant]
     Route: 065
  19. TEMAZEPAM [Concomitant]
     Route: 065
  20. BENICAR [Concomitant]
     Route: 065
  21. CLONIDINE [Concomitant]
     Route: 065
  22. LEVAQUIN [Concomitant]
     Route: 065
  23. CLARITIN [Concomitant]
     Route: 065
  24. HYDROCHLOROTHIAZIDE AND TRIAMTERENE [Concomitant]
     Route: 065
  25. PCE [Concomitant]
     Route: 065
  26. VICOPROFEN [Concomitant]
     Route: 065
  27. [THERAPY UNSPECIFIED] [Concomitant]
     Route: 065
     Dates: start: 20010116, end: 20040924

REACTIONS (27)
  - ACUTE CORONARY SYNDROME [None]
  - ARTERIOSCLEROSIS [None]
  - ATRIAL FIBRILLATION [None]
  - ATRIOVENTRICULAR BLOCK FIRST DEGREE [None]
  - BLOOD PRESSURE INCREASED [None]
  - BRADYCARDIA [None]
  - BUNDLE BRANCH BLOCK LEFT [None]
  - CARDIAC FAILURE CONGESTIVE [None]
  - CARDIOGENIC SHOCK [None]
  - CEREBROVASCULAR ACCIDENT [None]
  - CHEST PAIN [None]
  - CONFUSIONAL STATE [None]
  - DEATH [None]
  - DYSPEPSIA [None]
  - HEART RATE IRREGULAR [None]
  - HYPERKALAEMIA [None]
  - HYPERTENSION [None]
  - ISCHAEMIC CARDIOMYOPATHY [None]
  - MYOCARDIAL INFARCTION [None]
  - PNEUMONIA [None]
  - PNEUMONITIS [None]
  - PYREXIA [None]
  - RENAL FAILURE [None]
  - RENAL FAILURE CHRONIC [None]
  - SINUS TACHYCARDIA [None]
  - SYSTOLIC HYPERTENSION [None]
  - URINARY TRACT INFECTION STAPHYLOCOCCAL [None]
